FAERS Safety Report 15343028 (Version 2)
Quarter: 2018Q3

REPORT INFORMATION
  Report Type: Spontaneous
  Country: US (occurrence: US)
  Receive Date: 20180903
  Receipt Date: 20180911
  Transmission Date: 20181010
  Serious: Yes (Death, Hospitalization, Other)
  Sender: FDA-Public Use
  Company Number: US-AUROBINDO-AUR-APL-2018-043334

PATIENT
  Sex: Male

DRUGS (2)
  1. HYDROCODONE [Suspect]
     Active Substance: HYDROCODONE
     Indication: PRODUCT USED FOR UNKNOWN INDICATION
     Route: 042
  2. ACETAMINOPHEN. [Suspect]
     Active Substance: ACETAMINOPHEN
     Indication: PRODUCT USED FOR UNKNOWN INDICATION
     Route: 042

REACTIONS (13)
  - Upper gastrointestinal haemorrhage [Fatal]
  - Haemodynamic instability [Fatal]
  - Drug abuse [Fatal]
  - Generalised tonic-clonic seizure [Unknown]
  - Shock haemorrhagic [Fatal]
  - Disseminated intravascular coagulation [Fatal]
  - Rectal haemorrhage [Fatal]
  - Overdose [Fatal]
  - Air embolism [Fatal]
  - Pyrexia [Fatal]
  - Gastric ulcer [Fatal]
  - Oesophageal ulcer [Fatal]
  - Multiple organ dysfunction syndrome [Fatal]
